FAERS Safety Report 24752404 (Version 1)
Quarter: 2024Q4

REPORT INFORMATION
  Report Type: Spontaneous
  Country: NL (occurrence: NL)
  Receive Date: 20241219
  Receipt Date: 20241219
  Transmission Date: 20250115
  Serious: Yes (Other)
  Sender: CHIESI
  Company Number: NL-CHIESI-2024CHF08063

PATIENT
  Age: 16 Year
  Sex: Female

DRUGS (2)
  1. METRELEPTIN [Suspect]
     Active Substance: METRELEPTIN
     Indication: Product used for unknown indication
     Dosage: 5 MILLIGRAM
     Dates: start: 202304
  2. METRELEPTIN [Suspect]
     Active Substance: METRELEPTIN
     Dosage: 10 MILLIGRAM

REACTIONS (3)
  - Polycystic ovarian syndrome [Unknown]
  - Insulin resistance [Unknown]
  - Alopecia [Recovering/Resolving]

NARRATIVE: CASE EVENT DATE: 20230901
